FAERS Safety Report 9452297 (Version 1)
Quarter: 2013Q3

REPORT INFORMATION
  Report Type: Spontaneous
  Country: US (occurrence: None)
  Receive Date: 20130808
  Receipt Date: 20130808
  Transmission Date: 20140515
  Serious: Yes (Other)
  Sender: FDA-Public Use
  Company Number: None

PATIENT
  Age: 71 Year
  Sex: Female
  Weight: 165 kg

DRUGS (13)
  1. NULYTELY [Suspect]
     Indication: COLONOSCOPY
     Dates: start: 20130715, end: 20130715
  2. GABAPENTIN [Concomitant]
  3. ISOSORBIDE DINITRATE [Concomitant]
  4. PROTONIX [Concomitant]
  5. METOPROLOL TARTRATE [Concomitant]
  6. LEVROTHYROXINE [Concomitant]
  7. LASIX [Concomitant]
  8. SPIRONOLACTON [Concomitant]
  9. CARDIZEM [Concomitant]
  10. BENADRYL [Concomitant]
  11. VITAMIN D3 [Concomitant]
  12. FISH OIL [Concomitant]
  13. FOLIC ACID [Concomitant]

REACTIONS (3)
  - Headache [None]
  - Chest discomfort [None]
  - Atrial fibrillation [None]
